FAERS Safety Report 21018140 (Version 1)
Quarter: 2022Q2

REPORT INFORMATION
  Report Type: Spontaneous
  Country: US (occurrence: None)
  Receive Date: 20220628
  Receipt Date: 20220628
  Transmission Date: 20220720
  Serious: No
  Sender: FDA-Public Use
  Company Number: None

PATIENT
  Age: 60 Year
  Sex: Male
  Weight: 83.25 kg

DRUGS (4)
  1. PAXLOVID [Suspect]
     Active Substance: NIRMATRELVIR\RITONAVIR
     Indication: COVID-19
     Dosage: OTHER QUANTITY : 3 TABLET(S);?FREQUENCY : TWICE A DAY;?
     Route: 048
     Dates: start: 20220623, end: 20220626
  2. Tamsulosin/Flomax [Concomitant]
  3. VITAMIN B [Concomitant]
     Active Substance: VITAMIN B
  4. UNSPECIFIED INGREDIENT [Concomitant]
     Active Substance: UNSPECIFIED INGREDIENT

REACTIONS (5)
  - Diarrhoea [None]
  - Pain [None]
  - Gait disturbance [None]
  - Dysgeusia [None]
  - Dyschezia [None]

NARRATIVE: CASE EVENT DATE: 20220624
